FAERS Safety Report 20378267 (Version 3)
Quarter: 2025Q2

REPORT INFORMATION
  Report Type: Spontaneous
  Country: US (occurrence: US)
  Receive Date: 20220126
  Receipt Date: 20250510
  Transmission Date: 20250717
  Serious: Yes (Other)
  Sender: SANOFI AVENTIS
  Company Number: US-SA-SAC20220122000397

PATIENT
  Age: 55 Year
  Sex: Female

DRUGS (4)
  1. DUPIXENT [Suspect]
     Active Substance: DUPILUMAB
     Indication: Dermatitis atopic
     Dosage: 300 MG, QOW
     Route: 058
     Dates: start: 202101
  2. DUPIXENT [Suspect]
     Active Substance: DUPILUMAB
     Indication: Dermatitis
  3. DOXYCYCLINE HYCLATE [Concomitant]
     Active Substance: DOXYCYCLINE HYCLATE
     Dosage: 100 MG, BID
  4. EUCRISA [Concomitant]
     Active Substance: CRISABOROLE

REACTIONS (10)
  - Lipoedema [Unknown]
  - Skin fissures [Unknown]
  - Lymphoedema [Unknown]
  - Peripheral swelling [Unknown]
  - Skin atrophy [Unknown]
  - Skin haemorrhage [Unknown]
  - Dyspnoea [Unknown]
  - Skin plaque [Unknown]
  - Skin ulcer [Unknown]
  - Pain in extremity [Unknown]

NARRATIVE: CASE EVENT DATE: 20220101
